FAERS Safety Report 20495109 (Version 3)
Quarter: 2022Q1

REPORT INFORMATION
  Report Type: Spontaneous
  Country: CN (occurrence: CN)
  Receive Date: 20220221
  Receipt Date: 20220307
  Transmission Date: 20220423
  Serious: Yes (Other)
  Sender: FDA-Public Use
  Company Number: CN-TAKEDA-2022TJP018729

PATIENT
  Age: 83 Year
  Sex: Female

DRUGS (1)
  1. NESINA [Suspect]
     Active Substance: ALOGLIPTIN BENZOATE
     Indication: Blood glucose increased
     Dosage: 1 TABLET, QD
     Route: 048

REACTIONS (1)
  - Pain [Not Recovered/Not Resolved]
